FAERS Safety Report 24192905 (Version 1)
Quarter: 2024Q3

REPORT INFORMATION
  Report Type: Spontaneous
  Country: US (occurrence: US)
  Receive Date: 20240809
  Receipt Date: 20240809
  Transmission Date: 20241016
  Serious: Yes (Other)
  Sender: BRISTOL MYERS SQUIBB
  Company Number: US-BRISTOL-MYERS SQUIBB COMPANY-2024-125573

PATIENT
  Age: 79 Year
  Sex: Female
  Weight: 89.36 kg

DRUGS (21)
  1. REVLIMID [Suspect]
     Active Substance: LENALIDOMIDE
     Indication: Follicular lymphoma
     Route: 048
     Dates: start: 20240419, end: 202408
  2. ASPIRIN [Concomitant]
     Active Substance: ASPIRIN
  3. BIOTENE DRY MOUTH [SODIUM FLUOROPHOSPHATE] [Concomitant]
     Dosage: PASTE FRESH MINT
  4. BUDESONIDE [Concomitant]
     Active Substance: BUDESONIDE
     Dosage: 0.5MG/2ML VIALS 2 ML
  5. CALCIUM\ERGOCALCIFEROL [Concomitant]
     Active Substance: CALCIUM\ERGOCALCIFEROL
     Dosage: 500MG/200UNIT
  6. DIPHENHYDRAMINE [Concomitant]
     Active Substance: DIPHENHYDRAMINE
     Dosage: 12.5MG/5ML
  7. ALBUTEROL\IPRATROPIUM [Concomitant]
     Active Substance: ALBUTEROL\IPRATROPIUM
     Dosage: LIQUID 0.5/3MG 30X3ML
  8. PROAIR HFA [Concomitant]
     Active Substance: ALBUTEROL SULFATE
     Dosage: (200 PFS) 8.5 G
     Route: 048
  9. STIOLTO RESPIMAT [Concomitant]
     Active Substance: OLODATEROL HYDROCHLORIDE\TIOTROPIUM BROMIDE MONOHYDRATE
     Dosage: 2 5/2.5 MCG 4GM
  10. XYLITOL [Concomitant]
     Active Substance: XYLITOL
     Indication: Dry mouth
     Dosage: 40S
  11. GAZYVA [Concomitant]
     Active Substance: OBINUTUZUMAB
     Dosage: 25MG/ML, 40 ML
  12. ROSUVASTATIN [Concomitant]
     Active Substance: ROSUVASTATIN\ROSUVASTATIN CALCIUM
  13. DULOXETINE [Concomitant]
     Active Substance: DULOXETINE
     Dosage: DR
  14. FUROSEMIDE [Concomitant]
     Active Substance: FUROSEMIDE
  15. LOSARTAN [Concomitant]
     Active Substance: LOSARTAN\LOSARTAN POTASSIUM
  16. GABAPENTIN [Concomitant]
     Active Substance: GABAPENTIN
  17. METFORMIN [Concomitant]
     Active Substance: METFORMIN HYDROCHLORIDE
  18. BUSPIRONE [Concomitant]
     Active Substance: BUSPIRONE HYDROCHLORIDE
  19. CALCIUM\VITAMIN D [Concomitant]
     Active Substance: CALCIUM\VITAMIN D
  20. LIDOCAINE [Concomitant]
     Active Substance: LIDOCAINE
     Dosage: VISC ORAL SOLUTION
     Route: 048
  21. CALCIUM CARBONATE [Concomitant]
     Active Substance: CALCIUM CARBONATE
     Dosage: ANTACID M/S LIQ

REACTIONS (1)
  - Malignant neoplasm progression [Not Recovered/Not Resolved]

NARRATIVE: CASE EVENT DATE: 20240801
